FAERS Safety Report 8401502-3 (Version None)
Quarter: 2012Q2

REPORT INFORMATION
  Report Type: 
  Country: None (occurrence: None)
  Receive Date: 20120530
  Receipt Date: 20120530
  Transmission Date: 20120825
  Serious: Yes (Life-Threatening)
  Sender: FDA-Public Use
  Company Number: None

PATIENT
  Age: 35 Year
  Sex: Female
  Weight: 89.9 kg

DRUGS (1)
  1. AZITHROMYCIN [Suspect]
     Dosage: 500 QDAY IV
     Route: 042

REACTIONS (2)
  - PULSELESS ELECTRICAL ACTIVITY [None]
  - CARDIAC ARREST [None]
